FAERS Safety Report 9422255 (Version 2)
Quarter: 2013Q4

REPORT INFORMATION
  Report Type: Not Available
  Country: DK (occurrence: DK)
  Receive Date: 20130726
  Receipt Date: 20131121
  Transmission Date: 20140711
  Serious: Yes (Death, Hospitalization)
  Sender: FDA-Public Use
  Company Number: DK-ASTELLAS-2013US005383

PATIENT
  Age: 71 Year
  Sex: Female

DRUGS (9)
  1. TARCEVA [Suspect]
     Indication: NON-SMALL CELL LUNG CANCER STAGE IV
     Dosage: 150 MG, UID/QD
     Route: 048
     Dates: start: 20121228, end: 20130111
  2. MORFIN                             /00036303/ [Concomitant]
     Indication: DYSPNOEA
     Dosage: 5 DROPS, UNKNOWN/D
     Route: 048
     Dates: start: 20121009, end: 20130122
  3. PINEX                              /00020001/ [Concomitant]
     Indication: PAIN
     Dosage: 500 MG, PRN
     Route: 048
     Dates: start: 20110116, end: 20130122
  4. AMLODIPIN ACTAVIS                  /00972402/ [Concomitant]
     Indication: HYPERTENSION
     Dosage: 5 MG, UNKNOWN/D
     Route: 048
     Dates: start: 20110114, end: 20130122
  5. FOLINSYRE SAD                      /00024201/ [Concomitant]
     Indication: PRODUCT USED FOR UNKNOWN INDICATION
     Dosage: 5 MG, UID/QD
     Route: 048
     Dates: start: 20130103, end: 20130111
  6. PREDNISOLON                        /00016201/ [Concomitant]
     Indication: PRODUCT USED FOR UNKNOWN INDICATION
     Dosage: 25 MG, BID
     Route: 048
     Dates: start: 20130103, end: 20130112
  7. FURIX [Concomitant]
     Indication: PRODUCT USED FOR UNKNOWN INDICATION
     Dosage: 40 MG, PRN
     Route: 065
     Dates: start: 20130109, end: 20130116
  8. SOLU-MEDROL [Concomitant]
     Indication: PRODUCT USED FOR UNKNOWN INDICATION
     Dosage: 40 MG, BID
     Route: 065
     Dates: start: 20130112, end: 20130118
  9. CIPROFLOXACIN [Concomitant]
     Indication: PRODUCT USED FOR UNKNOWN INDICATION
     Dosage: 800 MG, UID/QD
     Route: 065
     Dates: start: 20130112, end: 20130116

REACTIONS (3)
  - Bronchopneumonia [Fatal]
  - Acute respiratory failure [Fatal]
  - Dyspnoea [Not Recovered/Not Resolved]
